FAERS Safety Report 13437245 (Version 1)
Quarter: 2017Q2

REPORT INFORMATION
  Report Type: Spontaneous
  Country: US (occurrence: US)
  Receive Date: 20170412
  Receipt Date: 20170412
  Transmission Date: 20170830
  Serious: No
  Sender: FDA-Public Use
  Company Number: US-SA-2016SA096756

PATIENT
  Age: 68 Year
  Sex: Female

DRUGS (1)
  1. ALLEGRA ALLERGY [Suspect]
     Active Substance: FEXOFENADINE HYDROCHLORIDE
     Indication: NASAL DECONGESTION THERAPY
     Dosage: DOSE:SHE TOOK HALF A TABLET ON?SATURDAY (14MAY2016) AND ANOTHER HALF ON SUNDAY (15MAY2016)
     Route: 048
     Dates: start: 20160514, end: 20160515

REACTIONS (5)
  - Discomfort [Not Recovered/Not Resolved]
  - Dizziness [Not Recovered/Not Resolved]
  - Disorientation [Not Recovered/Not Resolved]
  - Feeling abnormal [Not Recovered/Not Resolved]
  - Wrong technique in product usage process [Unknown]
